FAERS Safety Report 25398191 (Version 1)
Quarter: 2025Q2

REPORT INFORMATION
  Report Type: Spontaneous
  Country: US (occurrence: US)
  Receive Date: 20250604
  Receipt Date: 20250604
  Transmission Date: 20250716
  Serious: No
  Sender: SANOFI AVENTIS
  Company Number: US-SA-2025SA157257

PATIENT
  Age: 62 Year
  Sex: Female

DRUGS (6)
  1. KEVZARA [Suspect]
     Active Substance: SARILUMAB
     Indication: Rheumatoid arthritis
     Dosage: 200 MG, QOW
     Route: 058
     Dates: start: 202503
  2. HYRIMOZ [Concomitant]
     Active Substance: ADALIMUMAB-ADAZ
  3. SERTRALINE [Concomitant]
     Active Substance: SERTRALINE HYDROCHLORIDE
  4. CELEBREX [Concomitant]
     Active Substance: CELECOXIB
  5. OZEMPIC [Concomitant]
     Active Substance: SEMAGLUTIDE
  6. LINZESS [Concomitant]
     Active Substance: LINACLOTIDE

REACTIONS (3)
  - Joint swelling [Unknown]
  - Condition aggravated [Unknown]
  - Arthralgia [Unknown]

NARRATIVE: CASE EVENT DATE: 20250401
